FAERS Safety Report 12609638 (Version 1)
Quarter: 2016Q3

REPORT INFORMATION
  Report Type: Spontaneous
  Country: FR (occurrence: FR)
  Receive Date: 20160801
  Receipt Date: 20160801
  Transmission Date: 20161109
  Serious: Yes (Life-Threatening, Hospitalization)
  Sender: FDA-Public Use
  Company Number: FR-ACCORD-042752

PATIENT
  Age: 72 Year
  Sex: Male

DRUGS (4)
  1. CISPLATIN ACCORD [Suspect]
     Active Substance: CISPLATIN
     Indication: BLADDER TRANSITIONAL CELL CARCINOMA
     Dosage: STRENGTH: 1 MG/ML, SOLUTION FOR INFUSION AT THE DOSE OF 70 MG/M2, 18.5714 MG
     Route: 042
     Dates: start: 20160307
  2. DOXORUBICIN TEVA [Suspect]
     Active Substance: DOXORUBICIN
     Indication: BLADDER TRANSITIONAL CELL CARCINOMA
     Dosage: STRENGTH: 30 MG/M2
     Route: 042
     Dates: start: 20160307
  3. METHOTREXATE (METHOTREXATE SODIUM) [Suspect]
     Active Substance: METHOTREXATE SODIUM
     Indication: BLADDER TRANSITIONAL CELL CARCINOMA
     Dosage: STRENGTH: 30 MG/M2
     Route: 042
     Dates: start: 20160307
  4. VELBE [Suspect]
     Active Substance: VINBLASTINE SULFATE
     Indication: BLADDER TRANSITIONAL CELL CARCINOMA
     Dosage: STRENGTH: 10 MG, POWDER FOR SOLUTION FOR INJECTION 3 MG/M2
     Route: 042
     Dates: start: 20160307

REACTIONS (6)
  - Renal tubular necrosis [Unknown]
  - Acute kidney injury [Recovered/Resolved with Sequelae]
  - Multiple organ dysfunction syndrome [Unknown]
  - Neutropenia [Unknown]
  - Febrile bone marrow aplasia [Recovered/Resolved]
  - Septic shock [Recovered/Resolved]

NARRATIVE: CASE EVENT DATE: 20160401
